FAERS Safety Report 7316221-4 (Version None)
Quarter: 2011Q1

REPORT INFORMATION
  Report Type: 
  Country: None (occurrence: None)
  Receive Date: 20110225
  Receipt Date: 20110210
  Transmission Date: 20110831
  Serious: Yes (Hospitalization)
  Sender: FDA-Public Use
  Company Number: US-CELGENEUS-163-50794-11021530

PATIENT
  Age: 39 Year
  Sex: Female

DRUGS (2)
  1. BORTEZOMIB [Suspect]
     Route: 051
     Dates: start: 20101206, end: 20110126
  2. VIDAZA [Suspect]
     Route: 058
     Dates: start: 20101206, end: 20110126

REACTIONS (2)
  - ADVERSE EVENT [None]
  - NO THERAPEUTIC RESPONSE [None]
